FAERS Safety Report 20470433 (Version 1)
Quarter: 2022Q1

REPORT INFORMATION
  Report Type: Spontaneous
  Country: US (occurrence: US)
  Receive Date: 20220214
  Receipt Date: 20220214
  Transmission Date: 20220423
  Serious: Yes (Other)
  Sender: FDA-Public Use
  Company Number: US-RECORDATI RARE DISEASE INC.-2022000400

PATIENT
  Age: 8 Year
  Sex: Male

DRUGS (8)
  1. SUCCIMER [Suspect]
     Active Substance: SUCCIMER
     Indication: Manganese increased
     Dosage: UNK UNK, UNK
     Route: 048
  2. SUCCIMER [Suspect]
     Active Substance: SUCCIMER
     Indication: Chelation therapy
  3. LEVETIRACETAM [Concomitant]
     Active Substance: LEVETIRACETAM
     Indication: Seizure
     Dosage: UNK UNK, UNK
     Route: 065
  4. VALPROIC ACID [Concomitant]
     Active Substance: VALPROIC ACID
     Indication: Seizure
     Dosage: UNK UNK, UNK
     Route: 065
  5. LAMOTRIGINE [Concomitant]
     Active Substance: LAMOTRIGINE
     Indication: Seizure
     Dosage: UNK UNK, UNK
     Route: 065
  6. TOPIRAMATE [Concomitant]
     Active Substance: TOPIRAMATE
     Indication: Seizure
     Dosage: UNK UNK, UNK
     Route: 065
  7. FERROUS SULFATE [Concomitant]
     Active Substance: FERROUS SULFATE
     Indication: Supplementation therapy
     Dosage: UNK, FOR 5 DAYS EVERY 4 WEEKS
     Route: 065
  8. CALCIUM EDETATE [Concomitant]
     Indication: Chelation therapy
     Dosage: UNK, FOR 5 DAYS EVERY 4 WEEKS
     Route: 042

REACTIONS (2)
  - Nephrolithiasis [Unknown]
  - Off label use [Unknown]
